FAERS Safety Report 22194474 (Version 2)
Quarter: 2023Q2

REPORT INFORMATION
  Report Type: Spontaneous
  Country: FI (occurrence: None)
  Receive Date: 20230411
  Receipt Date: 20230417
  Transmission Date: 20230722
  Serious: Yes (Other)
  Sender: FDA-Public Use
  Company Number: 2023A080925

PATIENT

DRUGS (2)
  1. TICAGRELOR [Suspect]
     Active Substance: TICAGRELOR
     Route: 048
     Dates: start: 20190416
  2. CIPROFLOXACIN [Interacting]
     Active Substance: CIPROFLOXACIN

REACTIONS (12)
  - Diplegia [Unknown]
  - Tremor [Unknown]
  - Middle insomnia [Unknown]
  - Hot flush [Unknown]
  - Muscle tightness [Unknown]
  - Erythema [Unknown]
  - Tendon pain [Unknown]
  - Ear discomfort [Unknown]
  - Dizziness [Unknown]
  - Thoracic haemorrhage [Unknown]
  - Hypersensitivity [Unknown]
  - Drug interaction [Unknown]
